FAERS Safety Report 9133364 (Version 1)
Quarter: 2013Q1

REPORT INFORMATION
  Report Type: Spontaneous
  Country: IN (occurrence: IN)
  Receive Date: 20130301
  Receipt Date: 20130301
  Transmission Date: 20140127
  Serious: Yes (Death, Other)
  Sender: FDA-Public Use
  Company Number: IN-BAXTER-2012BAX023762

PATIENT
  Age: 81 Year
  Sex: Female

DRUGS (1)
  1. EXTRANEAL PERITONEAL [Suspect]
     Indication: PERITONEAL DIALYSIS
     Route: 033
     Dates: start: 20121106

REACTIONS (2)
  - Blood potassium decreased [Fatal]
  - Peritonitis [Recovered/Resolved]
